FAERS Safety Report 24578523 (Version 1)
Quarter: 2024Q4

REPORT INFORMATION
  Report Type: Spontaneous
  Country: US (occurrence: US)
  Receive Date: 20241105
  Receipt Date: 20241105
  Transmission Date: 20250114
  Serious: No
  Sender: ROCHE
  Company Number: US-ROCHE-10000121724

PATIENT
  Sex: Female

DRUGS (14)
  1. XOLAIR [Suspect]
     Active Substance: OMALIZUMAB
     Indication: Urticaria
     Route: 058
  2. XOLAIR [Suspect]
     Active Substance: OMALIZUMAB
  3. ZETIA [Concomitant]
     Active Substance: EZETIMIBE
  4. BRIMONIDINE SOL 0.15% [Concomitant]
     Dosage: SOL 0.15%
  5. GABAPENTIN [Concomitant]
     Active Substance: GABAPENTIN
     Dosage: GABAPENTIN CAP 300MG
  6. KETOROLAC TR SOL 0.4% [Concomitant]
  7. LEVOCETIRIZINE TAB 5MG [Concomitant]
  8. LOSARTAN  POT TAB 50MG [Concomitant]
  9. LUMIGAN SOL 0.01% [Concomitant]
  10. MAGNESIUM OX TAB 400MG [Concomitant]
  11. MONTELUKAST [Concomitant]
     Active Substance: MONTELUKAST
  12. RANITIDINE H TAB 300MG [Concomitant]
  13. ROSUVASTATIN [Concomitant]
     Active Substance: ROSUVASTATIN
  14. TIMOLOL MALE SOL 0.5% [Concomitant]

REACTIONS (1)
  - Rash pruritic [Not Recovered/Not Resolved]
